FAERS Safety Report 6050668-1 (Version None)
Quarter: 2009Q1

REPORT INFORMATION
  Report Type: 
  Country: None (occurrence: None)
  Receive Date: 20090126
  Receipt Date: 20090119
  Transmission Date: 20090719
  Serious: Yes (Congenital Anomaly, Other)
  Sender: FDA-Public Use
  Company Number: US-ELI_LILLY_AND_COMPANY-US200901003270

PATIENT

DRUGS (2)
  1. HUMULIN N [Suspect]
     Dosage: UNK, UNK
     Route: 064
     Dates: end: 20030101
  2. HUMULIN R [Suspect]
     Route: 064
     Dates: end: 20030101

REACTIONS (7)
  - CEREBRAL PALSY [None]
  - DE LANGE'S SYNDROME [None]
  - DRUG EXPOSURE DURING PREGNANCY [None]
  - DRUG EXPOSURE VIA BREAST MILK [None]
  - LACTOSE INTOLERANCE [None]
  - MUSCULAR DYSTROPHY [None]
  - PREMATURE BABY [None]
